FAERS Safety Report 15609931 (Version 1)
Quarter: 2018Q4

REPORT INFORMATION
  Report Type: Spontaneous
  Country: GB (occurrence: GB)
  Receive Date: 20181113
  Receipt Date: 20181113
  Transmission Date: 20190205
  Serious: Yes (Disabling)
  Sender: FDA-Public Use
  Company Number: GB-TEVA-2018-GB-974301

PATIENT
  Age: 49 Year
  Sex: Female

DRUGS (6)
  1. DULOXETINE. [Concomitant]
     Active Substance: DULOXETINE
     Route: 065
  2. AMITRIPTYLINE [Concomitant]
     Active Substance: AMITRIPTYLINE
     Route: 065
  3. INSULIN [Concomitant]
     Active Substance: INSULIN NOS
     Route: 065
  4. PREDNISOLONE. [Suspect]
     Active Substance: PREDNISOLONE
     Indication: DIFFUSE VASCULITIS
     Route: 048
     Dates: start: 2011
  5. PARACETAMOL [Concomitant]
     Active Substance: ACETAMINOPHEN
     Route: 065
  6. IBUPROFEN. [Concomitant]
     Active Substance: IBUPROFEN
     Route: 065

REACTIONS (3)
  - Obesity [Unknown]
  - Condition aggravated [Unknown]
  - Diabetes mellitus [Unknown]

NARRATIVE: CASE EVENT DATE: 2011
